FAERS Safety Report 5318660-X (Version None)
Quarter: 2007Q2

REPORT INFORMATION
  Report Type: 
  Country: None (occurrence: None)
  Receive Date: 20070508
  Receipt Date: 20070427
  Transmission Date: 20071010
  Serious: Yes (Other)
  Sender: FDA-Public Use
  Company Number: PHFR2007GB01468

PATIENT
  Age: 37 Year
  Sex: Male

DRUGS (6)
  1. ZOLEDRONIC ACID [Suspect]
     Indication: OSTEOPOROSIS
     Route: 042
     Dates: start: 20070201, end: 20070201
  2. AMLODIPINE [Concomitant]
     Dosage: 5MG/UNK
     Route: 048
  3. CETIRIZINE HCL [Concomitant]
     Dosage: 10MG/UNK
     Route: 050
  4. PREDNISOLONE [Concomitant]
     Dosage: 7DF/UNK
     Route: 048
  5. VENTOLIN [Concomitant]
     Dosage: AS NECESSARY
  6. VIAGRA [Concomitant]
     Dosage: AS NECESSARY

REACTIONS (4)
  - ASTHMA [None]
  - CHEST PAIN [None]
  - CONDITION AGGRAVATED [None]
  - DYSPNOEA [None]
